FAERS Safety Report 23557643 (Version 2)
Quarter: 2025Q4

REPORT INFORMATION
  Report Type: Spontaneous
  Country: EU (occurrence: EU)
  Receive Date: 20240223
  Receipt Date: 20251106
  Transmission Date: 20260118
  Serious: Yes (Other)
  Sender: AUROBINDO
  Company Number: EU-002147023-NVSC2023DE271900

PATIENT
  Sex: Female
  Weight: 90 kg

DRUGS (13)
  1. LEVETIRACETAM [Suspect]
     Active Substance: LEVETIRACETAM
     Indication: Epilepsy
     Dosage: UNK (1-0-2)
     Route: 048
  2. MAYZENT [Suspect]
     Active Substance: SIPONIMOD
     Indication: Multiple sclerosis
     Dosage: 0.25 MILLIGRAM, ONCE A DAY (0.25, 1X DAILY)
     Route: 065
  3. MAYZENT [Suspect]
     Active Substance: SIPONIMOD
     Dosage: 1.25 MILLIGRAM, ONCE A DAY
     Route: 065
  4. MAYZENT [Suspect]
     Active Substance: SIPONIMOD
     Dosage: 0.5 MILLIGRAM, ONCE A DAY
     Route: 065
  5. MAYZENT [Suspect]
     Active Substance: SIPONIMOD
     Dosage: 2 MILLIGRAM, ONCE A DAY
     Route: 065
  6. MAYZENT [Suspect]
     Active Substance: SIPONIMOD
     Dosage: 0.25 MILLIGRAM, ONCE A DAY
     Route: 065
  7. MAYZENT [Suspect]
     Active Substance: SIPONIMOD
     Dosage: 0.75 MILLIGRAM, ONCE A DAY
     Route: 065
  8. MAYZENT [Suspect]
     Active Substance: SIPONIMOD
     Dosage: UNK, TWO TIMES A DAY
     Route: 065
     Dates: start: 2023, end: 20231110
  9. MAYZENT [Suspect]
     Active Substance: SIPONIMOD
     Dosage: UNK, ONCE A DAY (1-0-0)
     Route: 048
     Dates: start: 20231019, end: 2023
  10. BACLOFEN [Concomitant]
     Active Substance: BACLOFEN
     Indication: Product used for unknown indication
     Dosage: UNK, FOUR TIMES/DAY (1-1-1-1)
     Route: 048
  11. TOLPERISONE [Concomitant]
     Active Substance: TOLPERISONE
     Indication: Product used for unknown indication
     Dosage: UNK, TWO TIMES A DAY (1-0-1)
     Route: 048
  12. MODAFINIL [Concomitant]
     Active Substance: MODAFINIL
     Indication: Product used for unknown indication
     Dosage: UNK, ONCE A DAY (1-0-0)
     Route: 065
  13. GABAPENTIN [Concomitant]
     Active Substance: GABAPENTIN
     Indication: Product used for unknown indication
     Dosage: UNK, DAILY (3)
     Route: 048

REACTIONS (3)
  - Lymphopenia [Recovered/Resolved]
  - Leukopenia [Recovered/Resolved]
  - Laboratory test abnormal [Recovered/Resolved]

NARRATIVE: CASE EVENT DATE: 20231108
